FAERS Safety Report 7605610-6 (Version None)
Quarter: 2011Q3

REPORT INFORMATION
  Report Type: 
  Country: None (occurrence: None)
  Receive Date: 20110713
  Receipt Date: 20110701
  Transmission Date: 20111222
  Serious: Yes (Life-Threatening)
  Sender: FDA-Public Use
  Company Number: CN-BAYER-2011-055152

PATIENT
  Age: 60 Year
  Sex: Male

DRUGS (2)
  1. MAGNEVIST [Suspect]
     Indication: COMPUTERISED TOMOGRAM
  2. MAGNEVIST [Suspect]
     Indication: NUCLEAR MAGNETIC RESONANCE IMAGING
     Dosage: UNK
     Dates: start: 20110616, end: 20110616

REACTIONS (8)
  - HYPOAESTHESIA [None]
  - RESTLESSNESS [None]
  - BLOOD PRESSURE DECREASED [None]
  - SHOCK [None]
  - PARALYSIS [None]
  - CEREBRAL INFARCTION [None]
  - RASH GENERALISED [None]
  - GENERALISED OEDEMA [None]
